FAERS Safety Report 5012420-5 (Version None)
Quarter: 2006Q2

REPORT INFORMATION
  Report Type: 
  Country: None (occurrence: None)
  Receive Date: 20060414
  Receipt Date: 20060112
  Transmission Date: 20061013
  Serious: No
  Sender: FDA-Public Use
  Company Number: 2006SP000310

PATIENT
  Age: 62 Year
  Sex: Female
  Weight: 60.3284 kg

DRUGS (2)
  1. LUNESTA [Suspect]
     Indication: INSOMNIA
     Dosage: 3 MG;ORAL
     Route: 048
     Dates: start: 20051223, end: 20060101
  2. FLURAZEPAM [Concomitant]

REACTIONS (2)
  - ARTHRALGIA [None]
  - SWELLING [None]
